FAERS Safety Report 7822005-0 (Version None)
Quarter: 2011Q4

REPORT INFORMATION
  Report Type: 
  Country: None (occurrence: None)
  Receive Date: 20111018
  Receipt Date: 20111008
  Transmission Date: 20120403
  Serious: Yes (Other)
  Sender: FDA-Public Use
  Company Number: PHHY2011GR89239

PATIENT
  Age: 68 Year
  Sex: Male

DRUGS (3)
  1. SPIRIVA [Concomitant]
  2. ONBREZ [Suspect]
  3. DIURETICS [Concomitant]

REACTIONS (3)
  - BURNING SENSATION [None]
  - TONGUE OEDEMA [None]
  - THROAT IRRITATION [None]
